FAERS Safety Report 9076082 (Version 1)
Quarter: 2013Q1

REPORT INFORMATION
  Report Type: Report from Study
  Country: US (occurrence: US)
  Receive Date: 20130129
  Receipt Date: 20130129
  Transmission Date: 20140127
  Serious: No
  Sender: FDA-Public Use
  Company Number: US-ABBOTT-12P-163-0935253-00

PATIENT
  Age: 79 None
  Sex: Female
  Weight: 59.47 kg

DRUGS (14)
  1. HUMIRA 40 MG/0.8 ML PEN [Suspect]
     Indication: RHEUMATOID ARTHRITIS
     Dates: start: 20120511
  2. TRANZENE [Suspect]
     Indication: NERVOUSNESS
     Dates: start: 1975
  3. COREG [Concomitant]
     Indication: PRODUCT USED FOR UNKNOWN INDICATION
  4. KLOR-CON [Concomitant]
     Indication: PRODUCT USED FOR UNKNOWN INDICATION
  5. HYDROXYCHLOROQUINE [Concomitant]
     Indication: PRODUCT USED FOR UNKNOWN INDICATION
  6. PREDNISONE [Concomitant]
     Indication: RHEUMATOID ARTHRITIS
     Dosage: DAILY
  7. FUROSEMIDE [Concomitant]
     Indication: PRODUCT USED FOR UNKNOWN INDICATION
     Dosage: DAILY
  8. ROPINIROLE [Concomitant]
     Indication: PRODUCT USED FOR UNKNOWN INDICATION
     Dosage: EVENING
  9. ROPINIROLE [Concomitant]
     Dosage: AT BEDTIME
  10. LEFLUNOMIDE [Concomitant]
     Indication: RHEUMATOID ARTHRITIS
  11. LANTUS [Concomitant]
     Indication: PRODUCT USED FOR UNKNOWN INDICATION
     Dosage: DAILY
  12. LISINOPRIL [Concomitant]
     Indication: HYPERTENSION
  13. PLAQUENIL [Concomitant]
     Indication: RHEUMATOID ARTHRITIS
  14. REQUIP [Concomitant]
     Indication: RESTLESS LEGS SYNDROME

REACTIONS (14)
  - Panic reaction [Not Recovered/Not Resolved]
  - Nausea [Not Recovered/Not Resolved]
  - Skin wound [Not Recovered/Not Resolved]
  - Injection site pain [Not Recovered/Not Resolved]
  - Fear [Not Recovered/Not Resolved]
  - Feeling abnormal [Not Recovered/Not Resolved]
  - Hyperhidrosis [Recovering/Resolving]
  - Chest pain [Recovered/Resolved]
  - Panic attack [Not Recovered/Not Resolved]
  - Anxiety [Not Recovered/Not Resolved]
  - Nervousness [Not Recovered/Not Resolved]
  - Local swelling [Recovered/Resolved]
  - Drug administration error [Unknown]
  - Injection site pain [Not Recovered/Not Resolved]
